FAERS Safety Report 6969346-7 (Version None)
Quarter: 2010Q3

REPORT INFORMATION
  Report Type: 
  Country: None (occurrence: None)
  Receive Date: 20100907
  Receipt Date: 20100828
  Transmission Date: 20110219
  Serious: Yes (Hospitalization)
  Sender: FDA-Public Use
  Company Number: US-AMGEN-QUU434768

PATIENT
  Sex: Female

DRUGS (1)
  1. ENBREL [Suspect]
     Indication: PSORIASIS
     Route: 058
     Dates: start: 20080129, end: 20100723

REACTIONS (3)
  - BLOOD POTASSIUM INCREASED [None]
  - CARDIAC FAILURE CONGESTIVE [None]
  - URINARY TRACT INFECTION [None]
